FAERS Safety Report 14837566 (Version 1)
Quarter: 2018Q2

REPORT INFORMATION
  Report Type: Spontaneous
  Country: US (occurrence: US)
  Receive Date: 20180418
  Receipt Date: 20180418
  Transmission Date: 20180711
  Serious: Yes (Hospitalization)
  Sender: FDA-Public Use
  Company Number: None

PATIENT
  Age: 74 Year
  Sex: Female
  Weight: 72.57 kg

DRUGS (15)
  1. CHELATED MAGNESIUM [Concomitant]
  2. ZINC PICOLINATE [Concomitant]
     Active Substance: ZINC PICOLINATE
  3. VITAMIN B COMPLEX [Concomitant]
     Active Substance: CYANOCOBALAMIN\DEXPANTHENOL\NIACINAMIDE\PYRIDOXINE HYDROCHLORIDE\RIBOFLAVIN 5^-PHOSPHATE SODIUM\THIAMINE HYDROCHLORIDE\VITAMIN B COMPLEX
  4. VITAMIN D [Concomitant]
     Active Substance: CHOLECALCIFEROL
  5. GENTLE IRON [Concomitant]
  6. OMEGA [Concomitant]
     Active Substance: CONVALLARIA MAJALIS\CRATAEGUS LAEVIGATA LEAF\PROXYPHYLLINE
  7. VALSARTAN. [Concomitant]
     Active Substance: VALSARTAN
  8. CLINPRO 5000 [Suspect]
     Active Substance: SODIUM FLUORIDE
     Indication: DENTAL CARIES
     Route: 004
     Dates: start: 20180104, end: 20180304
  9. AMLODIPINE BESYLATE. [Concomitant]
     Active Substance: AMLODIPINE BESYLATE
  10. IBUPROFEN. [Concomitant]
     Active Substance: IBUPROFEN
  11. VITAMIN C [Concomitant]
     Active Substance: ASCORBIC ACID
  12. CRESTOR [Concomitant]
     Active Substance: ROSUVASTATIN CALCIUM
  13. CARVEDILOL. [Concomitant]
     Active Substance: CARVEDILOL
  14. CALCIUM CITRATE W/ D3 [Concomitant]
  15. ASPIRIN. [Concomitant]
     Active Substance: ASPIRIN

REACTIONS (1)
  - Vertigo [None]

NARRATIVE: CASE EVENT DATE: 20180404
